FAERS Safety Report 7782098-6 (Version None)
Quarter: 2011Q3

REPORT INFORMATION
  Report Type: 
  Country: None (occurrence: None)
  Receive Date: 20110927
  Receipt Date: 20110914
  Transmission Date: 20111222
  Serious: Yes (Hospitalization)
  Sender: FDA-Public Use
  Company Number: DE-ELI_LILLY_AND_COMPANY-DE201109003825

PATIENT
  Sex: Female

DRUGS (7)
  1. SIMVASTATIN [Concomitant]
     Dosage: UNK, QD
  2. METOPROLOL TARTRATE [Concomitant]
     Dosage: UNK, QD
  3. AMLODIPINE BESYLATE [Concomitant]
  4. FORTEO [Suspect]
     Indication: OSTEOPOROSIS
     Dosage: UNK
     Route: 058
     Dates: start: 20100318
  5. HYDROCHLOROTHIAZIDE [Concomitant]
  6. ASPIRIN [Concomitant]
  7. PANTOPRAZOLE [Concomitant]

REACTIONS (3)
  - CORONARY ARTERY BYPASS [None]
  - NOSOCOMIAL INFECTION [None]
  - HYPOTENSION [None]
